FAERS Safety Report 25220401 (Version 1)
Quarter: 2025Q2

REPORT INFORMATION
  Report Type: Spontaneous
  Country: VE (occurrence: VE)
  Receive Date: 20250421
  Receipt Date: 20250421
  Transmission Date: 20250716
  Serious: Yes (Other)
  Sender: NOVARTIS
  Company Number: VE-002147023-PHHY2019VE222443

PATIENT
  Sex: Female

DRUGS (1)
  1. GLIVEC [Suspect]
     Active Substance: IMATINIB MESYLATE
     Indication: Chronic myeloid leukaemia
     Route: 065

REACTIONS (13)
  - Haemorrhage [Unknown]
  - Infection [Unknown]
  - Menstrual disorder [Unknown]
  - Abdominal discomfort [Unknown]
  - Premature menopause [Unknown]
  - Feeling hot [Unknown]
  - Amenorrhoea [Unknown]
  - Anxiety [Unknown]
  - Hypersensitivity [Unknown]
  - Hormone level abnormal [Unknown]
  - Oropharyngeal pain [Unknown]
  - Weight increased [Unknown]
  - Influenza [Unknown]
